FAERS Safety Report 6937549-3 (Version None)
Quarter: 2010Q3

REPORT INFORMATION
  Report Type: 
  Country: None (occurrence: None)
  Receive Date: 20100823
  Receipt Date: 20100823
  Transmission Date: 20110219
  Serious: Yes (Other)
  Sender: FDA-Public Use
  Company Number: None

PATIENT
  Age: 73 Year
  Sex: Male
  Weight: 99 kg

DRUGS (1)
  1. FLOLAN [Suspect]
     Dosage: 10 MCG/ML CONTINUOUS INHAL
     Route: 055
     Dates: start: 20100603, end: 20100604

REACTIONS (5)
  - HAEMODIALYSIS [None]
  - LACTIC ACIDOSIS [None]
  - RENAL FAILURE ACUTE [None]
  - SEPTIC SHOCK [None]
  - SHOCK [None]
